FAERS Safety Report 8460531-4 (Version None)
Quarter: 2012Q2

REPORT INFORMATION
  Report Type: 
  Country: None (occurrence: None)
  Receive Date: 20120622
  Receipt Date: 20120613
  Transmission Date: 20120825
  Serious: Yes (Hospitalization)
  Sender: FDA-Public Use
  Company Number: GB-ASTRAZENECA-2012SE39759

PATIENT
  Age: 28113 Day
  Sex: Female
  Weight: 50.2 kg

DRUGS (7)
  1. OMEPRAZOLE [Concomitant]
     Route: 048
  2. ALENDRONATE SODIUM [Concomitant]
     Route: 048
  3. CARBOPLATIN [Suspect]
     Indication: TRANSITIONAL CELL CARCINOMA
     Dosage: OVER 30 MINUTES
     Route: 042
     Dates: start: 20120315
  4. GEMCITABINE [Suspect]
     Indication: TRANSITIONAL CELL CARCINOMA
     Dosage: 1075 MG OVER 30 MINUTES IV INFUSION ON DAY 1 AND 8 OF EACH 21 DAY CYCLE
     Route: 042
     Dates: start: 20120315
  5. SOLIFENACIN SUCCINATE [Concomitant]
     Route: 048
  6. ZD6474 [Suspect]
     Indication: TRANSITIONAL CELL CARCINOMA
     Route: 048
     Dates: start: 20120315
  7. LEVOTHYROXINE [Concomitant]
     Route: 048

REACTIONS (1)
  - PLATELET COUNT DECREASED [None]
